FAERS Safety Report 9445123 (Version 1)
Quarter: 2013Q3

REPORT INFORMATION
  Report Type: Spontaneous
  Country: IT (occurrence: IT)
  Receive Date: 20130807
  Receipt Date: 20130807
  Transmission Date: 20140515
  Serious: Yes (Hospitalization)
  Sender: FDA-Public Use
  Company Number: IT-JNJFOC-20130801692

PATIENT
  Age: 12 Year
  Sex: Female

DRUGS (1)
  1. RISPERDAL [Suspect]
     Indication: MENTAL RETARDATION
     Route: 048
     Dates: start: 20130715, end: 20130715

REACTIONS (3)
  - Loss of consciousness [Recovered/Resolved]
  - Overdose [Recovered/Resolved]
  - Off label use [Unknown]
